FAERS Safety Report 7013212-8 (Version None)
Quarter: 2010Q3

REPORT INFORMATION
  Report Type: 
  Country: None (occurrence: None)
  Receive Date: 20100924
  Receipt Date: 20100916
  Transmission Date: 20110219
  Serious: Yes (Hospitalization, Other)
  Sender: FDA-Public Use
  Company Number: US-JNJFOC-20100709179

PATIENT
  Age: 18 Year
  Sex: Male

DRUGS (5)
  1. TOPAMAX [Suspect]
     Indication: PRODUCT USED FOR UNKNOWN INDICATION
     Dosage: 50 MG EVERY PM 25 MG EVERY PM
     Route: 065
  2. LITHIUM CARBONATE [Interacting]
     Indication: PRODUCT USED FOR UNKNOWN INDICATION
     Route: 065
  3. TETRACYCLINE [Interacting]
     Indication: ACNE
     Route: 065
  4. ZYPREXA [Concomitant]
     Route: 065
  5. ABILIFY [Concomitant]
     Route: 065

REACTIONS (3)
  - DEEP VEIN THROMBOSIS [None]
  - DRUG INTERACTION [None]
  - RENAL FAILURE ACUTE [None]
